FAERS Safety Report 23405702 (Version 1)
Quarter: 2024Q1

REPORT INFORMATION
  Report Type: Spontaneous
  Country: PL (occurrence: PL)
  Receive Date: 20240116
  Receipt Date: 20240116
  Transmission Date: 20240410
  Serious: Yes (Other)
  Sender: FDA-Public Use
  Company Number: PL-ABBVIE-5587602

PATIENT
  Age: 48 Year
  Sex: Male

DRUGS (1)
  1. GLECAPREVIR\PIBRENTASVIR [Suspect]
     Active Substance: GLECAPREVIR\PIBRENTASVIR
     Indication: Hepatitis C
     Dosage: ADMINISTERED REGIMEN:12 WEEKS, DISCONTINUATION WEEK: 2.
     Route: 048

REACTIONS (2)
  - Encephalopathy [Unknown]
  - Hyperbilirubinaemia [Unknown]
